FAERS Safety Report 9301624 (Version 1)
Quarter: 2013Q2

REPORT INFORMATION
  Report Type: Spontaneous
  Country: DE (occurrence: DE)
  Receive Date: 20130521
  Receipt Date: 20130521
  Transmission Date: 20140414
  Serious: Yes (Hospitalization)
  Sender: FDA-Public Use
  Company Number: DE-ROXANE LABORATORIES, INC.-2013-RO-00805RO

PATIENT
  Age: 69 Year
  Sex: Male
  Weight: 90 kg

DRUGS (2)
  1. LITHIUM CARBONATE [Suspect]
     Indication: BIPOLAR DISORDER
     Dosage: 900 MG
  2. PERAZINE [Suspect]
     Indication: BIPOLAR DISORDER
     Dosage: 100 MG

REACTIONS (2)
  - Atrioventricular block complete [Not Recovered/Not Resolved]
  - Atrioventricular block second degree [Unknown]
